FAERS Safety Report 5299678-2 (Version None)
Quarter: 2007Q2

REPORT INFORMATION
  Report Type: 
  Country: None (occurrence: None)
  Receive Date: 20070410
  Receipt Date: 20070328
  Transmission Date: 20071010
  Serious: Yes (Other)
  Sender: FDA-Public Use
  Company Number: GXKR2007ES03006

PATIENT
  Age: 59 Year
  Sex: Female

DRUGS (2)
  1. RIBAVIRIN [Suspect]
     Indication: HEPATITIS C
  2. PEGINTERFERON ALFA-2A(PEGINTERFERON ALFA-2A) [Suspect]
     Indication: HEPATITIS C

REACTIONS (8)
  - CUTANEOUS SARCOIDOSIS [None]
  - GRANULOMA SKIN [None]
  - HEPATIC ENZYME INCREASED [None]
  - LYMPHOCYTIC INFILTRATION [None]
  - LYMPHOPENIA [None]
  - RASH MACULO-PAPULAR [None]
  - SCAR PAIN [None]
  - THROMBOCYTOPENIA [None]
